FAERS Safety Report 4286730-3 (Version None)
Quarter: 2004Q1

REPORT INFORMATION
  Report Type: 
  Country: None (occurrence: None)
  Receive Date: 20040206
  Receipt Date: 20040129
  Transmission Date: 20041129
  Serious: Yes (Death)
  Sender: FDA-Public Use
  Company Number: US-GLAXOSMITHKLINE-A0495765A

PATIENT
  Sex: Male

DRUGS (3)
  1. WELLBUTRIN SR [Suspect]
     Route: 048
     Dates: start: 20040101, end: 20040101
  2. KLONOPIN [Concomitant]
  3. UNKNOWN MEDICATION [Concomitant]

REACTIONS (1)
  - DEATH [None]
